FAERS Safety Report 10137738 (Version 1)
Quarter: 2014Q2

REPORT INFORMATION
  Report Type: Spontaneous
  Country: US (occurrence: US)
  Receive Date: 20140429
  Receipt Date: 20140429
  Transmission Date: 20141212
  Serious: Yes (Hospitalization)
  Sender: FDA-Public Use
  Company Number: US-BAYER-2014-060039

PATIENT
  Age: 34 Year
  Sex: Female
  Weight: 79.82 kg

DRUGS (7)
  1. YASMIN [Suspect]
  2. YAZ [Suspect]
  3. ALBUTEROL [Concomitant]
     Dosage: UNK
     Dates: start: 20030329
  4. AVELOX [Concomitant]
     Dosage: 400 MG, QD
     Dates: start: 20030408
  5. INDOCIN [Concomitant]
     Indication: PNEUMONIA
     Dosage: 25 MG, TID WITH FOOD AS NEEDED
     Dates: start: 20030408
  6. TEQUIN [Concomitant]
  7. VICODIN [Concomitant]

REACTIONS (1)
  - Pulmonary embolism [Recovered/Resolved]
